FAERS Safety Report 6977040-1 (Version None)
Quarter: 2010Q3

REPORT INFORMATION
  Report Type: 
  Country: None (occurrence: None)
  Receive Date: 20100910
  Receipt Date: 20100902
  Transmission Date: 20110219
  Serious: Yes (Death, Hospitalization)
  Sender: FDA-Public Use
  Company Number: US-ROCHE-725543

PATIENT
  Sex: Female

DRUGS (1)
  1. CAPECITABINE [Suspect]
     Route: 048
     Dates: start: 20100701

REACTIONS (2)
  - FALL [None]
  - SEPTIC SHOCK [None]
